FAERS Safety Report 6029316-2 (Version None)
Quarter: 2009Q1

REPORT INFORMATION
  Report Type: 
  Country: None (occurrence: None)
  Receive Date: 20090106
  Receipt Date: 20081222
  Transmission Date: 20090719
  Serious: Yes (Hospitalization)
  Sender: FDA-Public Use
  Company Number: US-GENENTECH-274893

PATIENT

DRUGS (3)
  1. RITUXAN [Suspect]
     Indication: NON-HODGKIN'S LYMPHOMA
     Dosage: 375 MG/M2, 1/WEEK
     Route: 042
  2. EPRATUZUMAB [Suspect]
     Indication: NON-HODGKIN'S LYMPHOMA
     Dosage: 360 MG/M2, 1/WEEK
     Route: 042
  3. ANTIHISTAMINE NOS [Concomitant]
     Indication: PREMEDICATION

REACTIONS (1)
  - FEBRILE NEUTROPENIA [None]
